FAERS Safety Report 8767341 (Version 13)
Quarter: 2013Q2

REPORT INFORMATION
  Report Type: Report from Study
  Country: FR (occurrence: FR)
  Receive Date: 20120904
  Receipt Date: 20130612
  Transmission Date: 20140414
  Serious: Yes (Life-Threatening, Hospitalization, Other)
  Sender: FDA-Public Use
  Company Number: FR-BRISTOL-MYERS SQUIBB COMPANY-16769473

PATIENT
  Age: 77 Year
  Sex: Female

DRUGS (21)
  1. IPILIMUMAB [Suspect]
     Indication: METASTATIC MALIGNANT MELANOMA
     Route: 042
     Dates: start: 20120510, end: 20120711
  2. PIASCLEDINE [Concomitant]
     Indication: PREMEDICATION
     Route: 048
     Dates: start: 20030627
  3. ESOMEPRAZOLE [Concomitant]
     Indication: PREMEDICATION
     Route: 048
  4. KETOPROFEN [Concomitant]
     Indication: PREMEDICATION
     Route: 048
     Dates: end: 20120718
  5. SERTRALINE [Concomitant]
     Indication: PREMEDICATION
     Route: 048
     Dates: start: 1990
  6. PARACETAMOL [Concomitant]
     Indication: PREMEDICATION
     Route: 048
  7. DAFLON [Concomitant]
     Indication: PREMEDICATION
     Route: 048
  8. METFORMINE CHLORHYDRATE [Concomitant]
     Indication: PREMEDICATION
     Dosage: 1995-ONGOIN:850MG
     Route: 048
     Dates: start: 1990
  9. LYSINE ACETYLSALICYLATE [Concomitant]
     Dosage: JAN2004
     Route: 048
     Dates: start: 200001, end: 20120727
  10. VALSARTAN [Concomitant]
     Route: 048
     Dates: start: 20070320
  11. HYDROCHLOROTHIAZIDE [Concomitant]
     Indication: PREMEDICATION
     Route: 048
     Dates: start: 20070320, end: 20120809
  12. NAFTIDROFURYL OXALATE [Concomitant]
     Indication: PREMEDICATION
     Dosage: 12OCT2006
     Route: 048
     Dates: start: 20001013
  13. IRBESARTAN [Concomitant]
     Dates: start: 20070320, end: 20120809
  14. LOPERAMIDE [Concomitant]
     Dates: end: 20120903
  15. METOCLOPRAMIDE [Concomitant]
  16. AMPHOTERICIN B [Concomitant]
     Dates: start: 20120809, end: 20120903
  17. INSULIN LISPRO [Concomitant]
     Dates: start: 20120724, end: 20120903
  18. FUROSEMIDE [Concomitant]
     Dates: start: 20120727, end: 20120727
  19. DEXCHLORPHENIRAMINE [Concomitant]
     Dates: start: 20120722, end: 20120722
  20. ONDANSETRON [Concomitant]
     Dates: start: 20120815, end: 20120903
  21. FOLIC ACID [Concomitant]
     Dates: start: 20120721

REACTIONS (4)
  - Septic shock [Recovered/Resolved]
  - Pancytopenia [Recovered/Resolved]
  - Hyperthyroidism [Recovered/Resolved]
  - Neutropenia [Recovered/Resolved]
